FAERS Safety Report 5105924-8 (Version None)
Quarter: 2006Q3

REPORT INFORMATION
  Report Type: 
  Country: None (occurrence: None)
  Receive Date: 20060915
  Receipt Date: 20060911
  Transmission Date: 20061208
  Serious: Yes (Hospitalization, Other)
  Sender: FDA-Public Use
  Company Number: ES-BOEHRINGER INGELHEIM PHARMACEUTICALS, INC.-2006-BP-10786YA

PATIENT
  Sex: Male

DRUGS (2)
  1. OMNIC OCAS ORODISPERSABLE CR [Suspect]
     Indication: PROSTATITIS
     Route: 048
     Dates: start: 20060201, end: 20060201
  2. PROSCAR [Concomitant]
     Indication: PROSTATITIS

REACTIONS (1)
  - HEPATITIS [None]
